FAERS Safety Report 19720579 (Version 1)
Quarter: 2021Q3

REPORT INFORMATION
  Report Type: Spontaneous
  Country: US (occurrence: US)
  Receive Date: 20210819
  Receipt Date: 20210819
  Transmission Date: 20211014
  Serious: Yes (Other)
  Sender: FDA-Public Use
  Company Number: US-GLAXOSMITHKLINE-US2021172656

PATIENT
  Age: 64 Year
  Sex: Female

DRUGS (2)
  1. ALLEGRA?D [Suspect]
     Active Substance: FEXOFENADINE HYDROCHLORIDE\PSEUDOEPHEDRINE HYDROCHLORIDE
     Indication: MULTIPLE ALLERGIES
     Dosage: UNK
  2. FLONASE ALLERGY RELIEF [Suspect]
     Active Substance: FLUTICASONE PROPIONATE
     Indication: HYPERSENSITIVITY
     Dosage: UNK
     Dates: start: 20210809

REACTIONS (8)
  - Cerebrovascular accident [Recovering/Resolving]
  - Paraesthesia [Recovering/Resolving]
  - Headache [Recovering/Resolving]
  - Hypoaesthesia [Recovering/Resolving]
  - Visual impairment [Unknown]
  - Product dose omission issue [Unknown]
  - Facial pain [Recovering/Resolving]
  - Incorrect dose administered [Unknown]

NARRATIVE: CASE EVENT DATE: 202108
